FAERS Safety Report 7726552-1 (Version None)
Quarter: 2011Q3

REPORT INFORMATION
  Report Type: 
  Country: None (occurrence: None)
  Receive Date: 20110902
  Receipt Date: 20110830
  Transmission Date: 20111222
  Serious: Yes (Hospitalization)
  Sender: FDA-Public Use
  Company Number: DE-GENZYME-FABR-1002125

PATIENT
  Sex: Female

DRUGS (2)
  1. REPLAGAL [Suspect]
     Indication: FABRY'S DISEASE
     Dosage: UNK
     Dates: start: 20100101
  2. FABRAZYME [Suspect]
     Indication: FABRY'S DISEASE
     Dosage: UNK
     Route: 042
     Dates: end: 20100101

REACTIONS (1)
  - PERIOSTITIS [None]
